FAERS Safety Report 5806737-1 (Version None)
Quarter: 2008Q3

REPORT INFORMATION
  Report Type: 
  Country: None (occurrence: None)
  Receive Date: 20080709
  Receipt Date: 20080709
  Transmission Date: 20090109
  Serious: Yes (Life-Threatening, Disabling, Other)
  Sender: FDA-Public Use
  Company Number: None

PATIENT
  Age: 47 Year
  Sex: Female
  Weight: 54.7 kg

DRUGS (2)
  1. GENGRAF [Suspect]
     Indication: COMPLICATIONS OF BONE MARROW TRANSPLANT
     Dosage: 100MG BID PO, 3 WKS ON THIS LOT
     Route: 048
     Dates: start: 20080607, end: 20080702
  2. GENGRAF [Suspect]
     Indication: GRAFT VERSUS HOST DISEASE
     Dosage: 100MG BID PO, 3 WKS ON THIS LOT
     Route: 048
     Dates: start: 20080607, end: 20080702

REACTIONS (4)
  - DRUG INEFFECTIVE [None]
  - DRUG LEVEL DECREASED [None]
  - GRAFT VERSUS HOST DISEASE [None]
  - PHARMACEUTICAL PRODUCT COMPLAINT [None]
